FAERS Safety Report 7244462 (Version 5)
Quarter: 2012Q4

REPORT INFORMATION
  Report Type: Report from Study
  Country: CH (occurrence: CH)
  Receive Date: 20100113
  Receipt Date: 20121108
  Transmission Date: 20130627
  Serious: Yes (Death, Hospitalization)
  Sender: FDA-Public Use
  Company Number: CH-CELGENEUS-151-50794-10010466

PATIENT
  Age: 77 Year
  Sex: Female

DRUGS (7)
  1. VIDAZA [Suspect]
     Indication: ACUTE MYELOMONOCYTIC LEUKAEMIA
     Dosage: 141.87 Milligram
     Route: 058
     Dates: start: 20091215
  2. KONAKION [Concomitant]
     Indication: INR INCREASED
     Dosage: 10 Milligram
     Route: 041
     Dates: start: 20091222, end: 20100106
  3. SODIUM BICARBONATE [Concomitant]
     Indication: DRUG USE FOR UNKNOWN INDICATION
     Dosage: 500-1000 ml/g
     Route: 041
     Dates: start: 20091215
  4. DIAMOX [Concomitant]
     Indication: DRUG USE FOR UNKNOWN INDICATION
     Dosage: 500-0-1000mg
     Route: 048
     Dates: start: 20091215
  5. ROCEPHIN [Concomitant]
     Indication: DRUG USE FOR UNKNOWN INDICATION
     Dosage: 2 Gram
     Route: 041
     Dates: start: 20091216, end: 20091219
  6. FRAXIPARIN [Concomitant]
     Indication: DRUG USE FOR UNKNOWN INDICATION
     Route: 065
     Dates: start: 20091212, end: 20091215
  7. ZYLORIC [Concomitant]
     Indication: RENAL INSUFFICIENCY
     Dosage: 150 Milligram
     Route: 048

REACTIONS (4)
  - Pneumonia [Fatal]
  - Sepsis [Fatal]
  - Cerebral haemorrhage [Not Recovered/Not Resolved]
  - Circulatory collapse [Fatal]
